FAERS Safety Report 5914887-4 (Version None)
Quarter: 2008Q4

REPORT INFORMATION
  Report Type: 
  Country: None (occurrence: None)
  Receive Date: 20081010
  Receipt Date: 20081003
  Transmission Date: 20090506
  Serious: Yes (Other)
  Sender: FDA-Public Use
  Company Number: PHHY2008AR23529

PATIENT
  Sex: Female

DRUGS (2)
  1. DIOVAN [Suspect]
     Indication: HYPERTENSION
     Dosage: UNK
     Dates: start: 20040101
  2. DIOVAN [Suspect]
     Dosage: 160 MG, QD
     Dates: start: 20080101

REACTIONS (3)
  - CARDIAC FAILURE [None]
  - DYSPNOEA [None]
  - OEDEMA PERIPHERAL [None]
